FAERS Safety Report 8061406-5 (Version None)
Quarter: 2012Q1

REPORT INFORMATION
  Report Type: 
  Country: None (occurrence: None)
  Receive Date: 20120120
  Receipt Date: 20111013
  Transmission Date: 20120608
  Serious: No
  Sender: FDA-Public Use
  Company Number: US-ALLERGAN-1113512US

PATIENT
  Age: 85 Year
  Sex: Female

DRUGS (3)
  1. RESTASIS [Suspect]
     Indication: DRY EYE
     Dosage: 2 GTT, BID
     Route: 047
     Dates: start: 20110801
  2. SYSTANE [Concomitant]
  3. EYE DROPS [Concomitant]

REACTIONS (1)
  - VISION BLURRED [None]
